FAERS Safety Report 4307307-7 (Version None)
Quarter: 2004Q1

REPORT INFORMATION
  Report Type: 
  Country: None (occurrence: None)
  Receive Date: 20040226
  Receipt Date: 20040209
  Transmission Date: 20041129
  Serious: Yes (Hospitalization)
  Sender: FDA-Public Use
  Company Number: EM2004-0061

PATIENT
  Age: 47 Year
  Sex: Male
  Weight: 136.1 kg

DRUGS (8)
  1. PROLEUKIN [Suspect]
     Indication: MALIGNANT URINARY TRACT NEOPLASM
     Dosage: 9 MU, SQ, MON-FRI, SUBCUTAN.
     Route: 058
     Dates: start: 20040112, end: 20040205
  2. BENADRYL [Concomitant]
  3. AMARYL [Concomitant]
  4. MAXZIDE [Concomitant]
  5. PAXIL [Concomitant]
  6. ZYRTEC [Concomitant]
  7. ADVAIR DISKUS (FLUTICASONE PROPIONATE) [Concomitant]
  8. DIOVAN ^NOVARTIS^ (VALSARTAN) [Concomitant]

REACTIONS (7)
  - ANAEMIA [None]
  - DEHYDRATION [None]
  - HAEMOPTYSIS [None]
  - HYPOTENSION [None]
  - NAUSEA [None]
  - PYREXIA [None]
  - VOMITING [None]
